FAERS Safety Report 6326988-X (Version None)
Quarter: 2009Q3

REPORT INFORMATION
  Report Type: 
  Country: None (occurrence: None)
  Receive Date: 20090821
  Receipt Date: 20090810
  Transmission Date: 20100115
  Serious: Yes (Hospitalization)
  Sender: FDA-Public Use
  Company Number: ADR12542009

PATIENT
  Age: 54 Year
  Sex: Male

DRUGS (3)
  1. SIMVASTATIN [Suspect]
     Dosage: 600 MG ORAL
     Route: 048
  2. RAMIPRIL [Suspect]
     Dosage: 300 MG
  3. RANITIDINE [Suspect]
     Dosage: 4500 MG

REACTIONS (2)
  - HAEMODYNAMIC INSTABILITY [None]
  - MULTIPLE DRUG OVERDOSE [None]
